FAERS Safety Report 7380163-9 (Version None)
Quarter: 2011Q1

REPORT INFORMATION
  Report Type: 
  Country: None (occurrence: None)
  Receive Date: 20110329
  Receipt Date: 20101012
  Transmission Date: 20110831
  Serious: No
  Sender: FDA-Public Use
  Company Number: US-MYLANLABS-2010S1017388

PATIENT
  Age: 64 Year
  Sex: Female
  Weight: 66.23 kg

DRUGS (1)
  1. ESTRADIOL [Suspect]
     Indication: HORMONE REPLACEMENT THERAPY
     Dosage: X1 PATCH
     Route: 062
     Dates: start: 20100812, end: 20100819

REACTIONS (3)
  - SKIN BURNING SENSATION [None]
  - APPLICATION SITE RASH [None]
  - PRURITUS [None]
